FAERS Safety Report 19529903 (Version 2)
Quarter: 2021Q4

REPORT INFORMATION
  Report Type: Spontaneous
  Country: FR (occurrence: FR)
  Receive Date: 20210713
  Receipt Date: 20211012
  Transmission Date: 20220303
  Serious: Yes (Hospitalization, Other)
  Sender: FDA-Public Use
  Company Number: FR-LUPIN PHARMACEUTICALS INC.-2021-11587

PATIENT
  Age: 40 Year
  Sex: Male

DRUGS (3)
  1. ATORVASTATIN CALCIUM [Suspect]
     Active Substance: ATORVASTATIN CALCIUM
     Indication: Myocardial infarction
     Dosage: UNK
     Route: 065
  2. HYDROXYCHLOROQUINE [Suspect]
     Active Substance: HYDROXYCHLOROQUINE
     Indication: Skin lesion
     Dosage: 200 MILLIGRAM, BID
     Route: 065
  3. CLOBETASOL [Suspect]
     Active Substance: CLOBETASOL
     Indication: Skin lesion
     Dosage: UNK
     Route: 061

REACTIONS (7)
  - Toxicity to various agents [Recovered/Resolved]
  - Jessner^s lymphocytic infiltration [Recovered/Resolved]
  - Immune-mediated myositis [Recovered/Resolved]
  - Hepatic cytolysis [Recovered/Resolved]
  - Myalgia [Recovering/Resolving]
  - Drug intolerance [Unknown]
  - Drug ineffective [Unknown]
